FAERS Safety Report 12062251 (Version 2)
Quarter: 2016Q1

REPORT INFORMATION
  Report Type: Report from Study
  Country: US (occurrence: US)
  Receive Date: 20160210
  Receipt Date: 20160322
  Transmission Date: 20160526
  Serious: No
  Sender: FDA-Public Use
  Company Number: US-AMGEN-USASL2016014972

PATIENT
  Age: 57 Year
  Sex: Female

DRUGS (2)
  1. LIDEX [Concomitant]
     Active Substance: FLUOCINONIDE
     Dosage: UNK
  2. ENBREL [Suspect]
     Active Substance: ETANERCEPT
     Indication: PSORIASIS
     Dosage: 50 MG, 2 TIMES/WK
     Route: 065
     Dates: start: 20160129

REACTIONS (8)
  - Injection site rash [Unknown]
  - Macule [Unknown]
  - Injection site pain [Recovered/Resolved]
  - Scab [Recovering/Resolving]
  - Injection site erythema [Unknown]
  - Injection site reaction [Unknown]
  - Skin exfoliation [Unknown]
  - Skin haemorrhage [Recovering/Resolving]

NARRATIVE: CASE EVENT DATE: 20160129
